FAERS Safety Report 15659041 (Version 10)
Quarter: 2019Q2

REPORT INFORMATION
  Report Type: Report from Study
  Country: ZA (occurrence: ZA)
  Receive Date: 20181127
  Receipt Date: 20190614
  Transmission Date: 20190711
  Serious: Yes (Life-Threatening, Hospitalization)
  Sender: FDA-Public Use
  Company Number: ZA-SA-2018SA299725

PATIENT
  Age: 66 Year
  Sex: Female

DRUGS (12)
  1. MYLAN FUROSEMIDE [Concomitant]
     Active Substance: FUROSEMIDE
     Dosage: 20 MG, BID (BEFORE SUPPER AND BEFORE BREAKFAST)
     Route: 065
     Dates: start: 20181001
  2. METFORMIN [Concomitant]
     Active Substance: METFORMIN HYDROCHLORIDE
     Dosage: 1000 MG, BID (BEFORE SUPPER AND BEFROE BREAKFAST)
     Route: 065
     Dates: start: 20181022
  3. ADCO-SIMVASTATIN [Concomitant]
     Active Substance: SIMVASTATIN
     Dosage: 20 MG, QD (BEFORE BREAKFAST)
     Route: 065
     Dates: start: 20081001
  4. LACSON [Concomitant]
     Active Substance: LACTULOSE
     Dosage: UNK UNK, UNK
     Route: 065
  5. OPTISULIN (INSULIN GLARGINE) [Suspect]
     Active Substance: INSULIN GLARGINE
     Dosage: 30 U, QD
     Route: 065
     Dates: start: 20181009
  6. DIAGLUCIDE [Concomitant]
     Active Substance: GLICLAZIDE
     Dosage: 120 MG, QD (BEFROE BREAKFAST)
     Route: 065
     Dates: start: 20081001
  7. NOVORAPID [Concomitant]
     Active Substance: INSULIN ASPART
     Dosage: 10 MG, TID (BEFORE BREAKFAST, BEFORE LUNCH AND BEFORE SUPPER)
     Dates: start: 20181126
  8. OPTISULIN (INSULIN GLARGINE) [Suspect]
     Active Substance: INSULIN GLARGINE
     Dosage: 34 U, QD
     Dates: start: 20181009
  9. OPTISULIN (INSULIN GLARGINE) [Suspect]
     Active Substance: INSULIN GLARGINE
     Dosage: 37 U, QD
     Dates: start: 20181009
  10. INSULIN GLARGINE [Suspect]
     Active Substance: INSULIN GLARGINE
     Indication: TYPE 2 DIABETES MELLITUS
     Dosage: 10 U, HS
     Route: 065
     Dates: start: 20181026
  11. CIPLA LOSARTAN [Concomitant]
     Dosage: 50 MG, QD (AT BREAKFAST)
     Route: 065
     Dates: start: 20181001
  12. OPTISULIN (INSULIN GLARGINE) [Suspect]
     Active Substance: INSULIN GLARGINE
     Dosage: 40 IU, QD
     Dates: start: 20181009

REACTIONS (19)
  - Cardiac disorder [Unknown]
  - Gastric varices [Unknown]
  - Dry mouth [Unknown]
  - Dyspnoea [Not Recovered/Not Resolved]
  - Fatigue [Not Recovered/Not Resolved]
  - Internal haemorrhage [Not Recovered/Not Resolved]
  - Taste disorder [Unknown]
  - Hernia [Not Recovered/Not Resolved]
  - Vomiting [Unknown]
  - Cough [Not Recovered/Not Resolved]
  - Unevaluable event [Not Recovered/Not Resolved]
  - Gastric haemorrhage [Not Recovered/Not Resolved]
  - Influenza [Not Recovered/Not Resolved]
  - Blood glucose increased [Not Recovered/Not Resolved]
  - Bleeding varicose vein [Recovered/Resolved]
  - Nausea [Unknown]
  - Haematemesis [Recovered/Resolved]
  - Lethargy [Unknown]
  - Abdominal pain upper [Unknown]

NARRATIVE: CASE EVENT DATE: 20181026
